FAERS Safety Report 6026766-5 (Version None)
Quarter: 2009Q1

REPORT INFORMATION
  Report Type: 
  Country: None (occurrence: None)
  Receive Date: 20090105
  Receipt Date: 20081229
  Transmission Date: 20090719
  Serious: No
  Sender: FDA-Public Use
  Company Number: US-JNJFOC-20081205749

PATIENT
  Sex: Female
  Weight: 56.25 kg

DRUGS (5)
  1. FENTANYL TRANSDERMAL SYSTEM [Suspect]
     Indication: CANCER PAIN
     Route: 062
  2. FENTANYL TRANSDERMAL SYSTEM [Suspect]
     Indication: PAIN
     Route: 062
  3. OXYCONTIN [Concomitant]
     Route: 065
  4. OXYCODONE [Concomitant]
     Route: 065
  5. ATIVAN [Concomitant]
     Route: 065

REACTIONS (11)
  - APPLICATION SITE PRURITUS [None]
  - APPLICATION SITE RASH [None]
  - ASTHENIA [None]
  - DRUG INEFFECTIVE [None]
  - FEELING ABNORMAL [None]
  - HEADACHE [None]
  - IRRITABILITY [None]
  - MALAISE [None]
  - NAUSEA [None]
  - PRURITUS GENERALISED [None]
  - WRONG TECHNIQUE IN DRUG USAGE PROCESS [None]
